FAERS Safety Report 5998012-X (Version None)
Quarter: 2008Q4

REPORT INFORMATION
  Report Type: 
  Country: None (occurrence: None)
  Receive Date: 20081211
  Receipt Date: 20081125
  Transmission Date: 20090506
  Serious: Yes (Death, Hospitalization)
  Sender: FDA-Public Use
  Company Number: KV200800596

PATIENT
  Age: 81 Year
  Sex: Male

DRUGS (4)
  1. ISOSORBIDE MONONITRATE  SLOW RELEASE TABLET [Suspect]
     Indication: DRUG USE FOR UNKNOWN INDICATION
     Dosage: ORAL
     Route: 048
     Dates: start: 20080601
  2. LISINOPRIL [Concomitant]
  3. ATENOLOL [Concomitant]
  4. INSULIN (INSULIN) [Concomitant]

REACTIONS (4)
  - ARRHYTHMIA [None]
  - BLOOD PRESSURE INCREASED [None]
  - ELECTROCARDIOGRAM ABNORMAL [None]
  - PRODUCT QUALITY ISSUE [None]
